FAERS Safety Report 9312338 (Version 1)
Quarter: 2013Q2

REPORT INFORMATION
  Report Type: Spontaneous
  Country: IT (occurrence: IT)
  Receive Date: 20130528
  Receipt Date: 20130528
  Transmission Date: 20140414
  Serious: Yes (Hospitalization)
  Sender: FDA-Public Use
  Company Number: IT-JNJFOC-20130510808

PATIENT
  Age: 42 Year
  Sex: Female
  Weight: 56 kg

DRUGS (7)
  1. XEPLION [Suspect]
     Indication: SCHIZOPHRENIA, DISORGANISED TYPE
     Route: 030
     Dates: start: 20121227, end: 20130330
  2. ABILIFY [Suspect]
     Indication: SCHIZOPHRENIA, DISORGANISED TYPE
     Route: 048
     Dates: start: 20130226, end: 20130514
  3. RIVOTRIL [Concomitant]
     Indication: TENSION
     Route: 048
  4. RIVOTRIL [Concomitant]
     Indication: ANXIETY
     Route: 048
  5. LYRICA [Concomitant]
     Indication: TENSION
     Route: 048
     Dates: start: 20130226
  6. LYRICA [Concomitant]
     Indication: ANXIETY
     Route: 048
     Dates: start: 20130226
  7. MELATONIN [Concomitant]
     Indication: INSOMNIA
     Route: 065

REACTIONS (2)
  - Leukopenia [Unknown]
  - Weight decreased [Unknown]
